FAERS Safety Report 5563650-5 (Version None)
Quarter: 2007Q4

REPORT INFORMATION
  Report Type: 
  Country: None (occurrence: None)
  Receive Date: 20071214
  Receipt Date: 20071214
  Transmission Date: 20080405
  Serious: Yes (Other)
  Sender: FDA-Public Use
  Company Number: None

PATIENT
  Sex: Female
  Weight: 56.6996 kg

DRUGS (1)
  1. CHANTIX [Suspect]
     Indication: NICOTINE DEPENDENCE
     Dosage: ORALLY 1X1DAY
     Route: 048
     Dates: start: 20071030, end: 20071108

REACTIONS (5)
  - AGITATION [None]
  - DEPRESSION [None]
  - DYSPHONIA [None]
  - NIGHTMARE [None]
  - SLEEP DISORDER [None]
